FAERS Safety Report 7801035-9 (Version None)
Quarter: 2011Q4

REPORT INFORMATION
  Report Type: 
  Country: None (occurrence: None)
  Receive Date: 20111007
  Receipt Date: 20111005
  Transmission Date: 20120403
  Serious: No
  Sender: FDA-Public Use
  Company Number: US-BIOGENIDEC-2011BI012283

PATIENT
  Sex: Male

DRUGS (2)
  1. TYSABRI [Suspect]
     Route: 042
     Dates: start: 20080215, end: 20110215
  2. TYSABRI [Suspect]
     Indication: MULTIPLE SCLEROSIS
     Route: 042
     Dates: start: 20080416, end: 20110223

REACTIONS (6)
  - ILL-DEFINED DISORDER [None]
  - BALANCE DISORDER [None]
  - ALOPECIA [None]
  - FALL [None]
  - DYSARTHRIA [None]
  - JOINT DISLOCATION [None]
